FAERS Safety Report 22196206 (Version 1)
Quarter: 2023Q2

REPORT INFORMATION
  Report Type: Spontaneous
  Country: US (occurrence: US)
  Receive Date: 20230411
  Receipt Date: 20230411
  Transmission Date: 20230721
  Serious: Yes (Other)
  Sender: FDA-Public Use
  Company Number: US-EyePoint Pharmaceuticals, Inc.-US-EYP-23-00115

PATIENT
  Age: 67 Year
  Sex: Male

DRUGS (19)
  1. DEXYCU [Suspect]
     Active Substance: DEXAMETHASONE
     Indication: Cataract operation
     Dosage: ANTERIOR TO THE IRIS IN THE INFERIOR ANGLE IN BOTH EYES/OU
     Route: 031
  2. DEXYCU [Suspect]
     Active Substance: DEXAMETHASONE
  3. LATANOPROST [Concomitant]
     Active Substance: LATANOPROST
     Indication: Exfoliation glaucoma
     Dosage: BOTH EYES/OU
     Route: 031
  4. BSS PLUS WITH PHENYLEPHRINE/KETOROLAC [Concomitant]
     Indication: Eye irrigation
     Dosage: LEFT EYE/OS
     Route: 031
  5. BSS PLUS WITH PHENYLEPHRINE/KETOROLAC [Concomitant]
     Indication: Eye irrigation
     Dosage: LEFT EYE/OS
     Route: 031
  6. BSS PLUS WITH PHENYLEPHRINE/KETOROLAC [Concomitant]
     Indication: Eye irrigation
     Dosage: LEFT EYE/OS
     Route: 031
  7. BSS PLUS WITH EPINEPHRINE [Concomitant]
     Indication: Eye irrigation
     Dosage: RIGHT EYE/OD
     Route: 031
  8. BSS PLUS WITH EPINEPHRINE [Concomitant]
     Indication: Eye irrigation
     Dosage: RIGHT EYE/OD
     Route: 031
  9. LIDOCAINE + EPINEPHRINE [Concomitant]
     Indication: Anaesthesia
     Dosage: BOTH EYES/OU
     Route: 031
  10. LIDOCAINE + EPINEPHRINE [Concomitant]
     Indication: Pupil dilation procedure
  11. LIDOCAINE + EPINEPHRINE + TETRACAINE [Concomitant]
     Indication: Anaesthesia
     Dosage: RIGHT EYE/OD
     Route: 031
  12. LIDOCAINE + EPINEPHRINE + TETRACAINE [Concomitant]
     Indication: Pupil dilation procedure
  13. VIGAMOX [Concomitant]
     Active Substance: MOXIFLOXACIN HYDROCHLORIDE
     Indication: Infection prophylaxis
     Dosage: BOTH EYES/OU
     Route: 031
  14. ZYMAXID [Concomitant]
     Active Substance: GATIFLOXACIN
     Indication: Infection prophylaxis
     Dosage: BOTH EYES/OU
     Route: 031
  15. CHONDROITIN SULFATE SODIUM NOS\HYALURONATE SODIUM [Suspect]
     Active Substance: CHONDROITIN SULFATE SODIUM NOS\HYALURONATE SODIUM
     Indication: Cataract operation
     Dosage: BOTH EYES/OU
     Route: 031
  16. HYALURONATE SODIUM [Suspect]
     Active Substance: HYALURONATE SODIUM
     Indication: Cataract operation
     Dosage: RIGHT EYE/OD
     Route: 031
  17. BETADINE [Concomitant]
     Active Substance: POVIDONE-IODINE
     Indication: Infection prophylaxis
     Dosage: BOTH EYES/OU
     Route: 031
  18. ALPHAGAN P [Concomitant]
     Active Substance: BRIMONIDINE TARTRATE
     Indication: Intraocular pressure increased
     Dosage: BOTH EYES/OU
     Route: 031
  19. DIAMOX SEQUELS [Concomitant]
     Active Substance: ACETAZOLAMIDE
     Indication: Intraocular pressure increased
     Route: 031

REACTIONS (3)
  - Iris atrophy [Unknown]
  - Device dislocation [Unknown]
  - Off label use [Unknown]
